FAERS Safety Report 9720622 (Version 4)
Quarter: 2014Q1

REPORT INFORMATION
  Report Type: Spontaneous
  Country: CA (occurrence: CA)
  Receive Date: 20131129
  Receipt Date: 20140107
  Transmission Date: 20141002
  Serious: Yes (Other)
  Sender: FDA-Public Use
  Company Number: PHHY2013CA136803

PATIENT
  Sex: Male

DRUGS (3)
  1. DIOVAN HCT [Suspect]
     Dosage: 1 DF (320/25 MG), QD (IN MORNING)
     Route: 048
  2. DIOVAN HCT [Suspect]
     Dosage: 1 DF, (320/25 MG)
     Route: 048
     Dates: start: 201307
  3. VALSARTAN + HCT [Suspect]
     Dosage: UNK UKN, UNK

REACTIONS (4)
  - Crohn^s disease [Unknown]
  - Short-bowel syndrome [Unknown]
  - Malaise [Unknown]
  - Hypertension [Unknown]
